FAERS Safety Report 14590506 (Version 5)
Quarter: 2018Q4

REPORT INFORMATION
  Report Type: Report from Study
  Country: DE (occurrence: DE)
  Receive Date: 20180302
  Receipt Date: 20181016
  Transmission Date: 20190204
  Serious: Yes (Hospitalization)
  Sender: FDA-Public Use
  Company Number: PHHY2017DE122074

PATIENT
  Age: 66 Year
  Sex: Male
  Weight: 90 kg

DRUGS (6)
  1. CARVEDILOL. [Concomitant]
     Active Substance: CARVEDILOL
     Indication: HYPERTENSION
     Dosage: 12.5 MG, (1-0-1/2)
     Route: 065
  2. ENTRESTO [Suspect]
     Active Substance: SACUBITRIL\VALSARTAN
     Indication: CARDIAC FAILURE
     Dosage: 100 MG(49 MG SACUBITRIL, 51 MG VALSARTAN), BID
     Route: 065
     Dates: start: 20161219, end: 20170103
  3. RAMIPRIL. [Concomitant]
     Active Substance: RAMIPRIL
     Dosage: 2.5 MG , QD (1-0-0)
     Route: 065
     Dates: start: 20180303
  4. ENTRESTO [Suspect]
     Active Substance: SACUBITRIL\VALSARTAN
     Dosage: 1 DF(SACUBITRIL 97MG/VALSARTAN103MG), UNK
     Route: 048
     Dates: start: 20170104, end: 20180214
  5. RAMIPRIL. [Concomitant]
     Active Substance: RAMIPRIL
     Indication: CARDIAC FAILURE
     Dosage: 0.5 DF (2.5 MG), BID
     Route: 065
     Dates: start: 20180215, end: 20180302
  6. CARVEDILOL. [Concomitant]
     Active Substance: CARVEDILOL
     Dosage: 12.5 MG, BID (1-0-1)
     Route: 065
     Dates: start: 2010

REACTIONS (7)
  - Acute kidney injury [Recovered/Resolved]
  - Pneumonia [Recovered/Resolved]
  - Chronic obstructive pulmonary disease [Recovered/Resolved]
  - Contraindicated product administered [Unknown]
  - Infective exacerbation of chronic obstructive airways disease [Recovered/Resolved]
  - Cardiac failure [Recovered/Resolved]
  - Chronic obstructive pulmonary disease [Recovered/Resolved]

NARRATIVE: CASE EVENT DATE: 20170801
